FAERS Safety Report 20735860 (Version 2)
Quarter: 2022Q2

REPORT INFORMATION
  Report Type: Spontaneous
  Country: US (occurrence: US)
  Receive Date: 20220421
  Receipt Date: 20220511
  Transmission Date: 20220720
  Serious: No
  Sender: FDA-Public Use
  Company Number: US-TEVA-2022-US-2021974

PATIENT
  Age: 32 Year
  Sex: Male
  Weight: 48.99 kg

DRUGS (9)
  1. MODAFINIL [Interacting]
     Active Substance: MODAFINIL
     Indication: Narcolepsy
     Route: 065
     Dates: start: 2018
  2. MODAFINIL [Interacting]
     Active Substance: MODAFINIL
     Dosage: 300 MILLIGRAM DAILY; 200 MG IN THE MORNING AND 100 MG IN THE AFTERNOON
     Dates: start: 202002
  3. MODAFINIL [Interacting]
     Active Substance: MODAFINIL
     Dosage: 500 MILLIGRAM DAILY; 300 MG IN THE MORNING AND 200 MG IN THE AFTERNOON
     Dates: start: 202201
  4. MODAFINIL [Interacting]
     Active Substance: MODAFINIL
     Dosage: 400 MILLIGRAM DAILY; 200 MG IN THE MORNING AND 200 MG IN THE AFTERNOON
  5. ALBUTEROL SULFATE [Suspect]
     Active Substance: ALBUTEROL SULFATE
     Route: 065
  6. EMTRICITABINE\TENOFOVIR DISOPROXIL FUMARATE [Interacting]
     Active Substance: EMTRICITABINE\TENOFOVIR DISOPROXIL FUMARATE
     Route: 065
  7. TRUVADA [Concomitant]
     Active Substance: EMTRICITABINE\TENOFOVIR DISOPROXIL FUMARATE
  8. YUPELRI [Concomitant]
     Active Substance: REVEFENACIN
  9. BOTOX [Concomitant]
     Active Substance: ONABOTULINUMTOXINA
     Indication: Migraine

REACTIONS (13)
  - Drug interaction [Unknown]
  - Drug hypersensitivity [Unknown]
  - Drug ineffective [Unknown]
  - Crying [Unknown]
  - Mania [Unknown]
  - Dysgeusia [Unknown]
  - Abdominal pain upper [Unknown]
  - Feeling jittery [Unknown]
  - Pain [Unknown]
  - Heart rate increased [Unknown]
  - Blood pressure increased [Unknown]
  - Fatigue [Unknown]
  - Asthenia [Unknown]
